FAERS Safety Report 11514932 (Version 1)
Quarter: 2015Q3

REPORT INFORMATION
  Report Type: Spontaneous
  Country: US (occurrence: US)
  Receive Date: 20150916
  Receipt Date: 20150916
  Transmission Date: 20151125
  Serious: No
  Sender: FDA-Public Use
  Company Number: US-BAXALTA-2015BLT001761

PATIENT
  Sex: Female

DRUGS (2)
  1. HYQVIA [Suspect]
     Active Substance: HUMAN IMMUNOGLOBULIN G\HYALURONIDASE RECOMBINANT HUMAN
     Indication: IMMUNODEFICIENCY COMMON VARIABLE
     Dosage: 2.5 G, 1X A WEEK
     Dates: start: 20150902
  2. HYQVIA [Suspect]
     Active Substance: HUMAN IMMUNOGLOBULIN G\HYALURONIDASE RECOMBINANT HUMAN
     Dosage: UNK
     Dates: start: 20150909

REACTIONS (3)
  - Infusion site erythema [Recovered/Resolved]
  - Infusion site pain [Unknown]
  - Injection site discomfort [Unknown]
